FAERS Safety Report 5781834-8 (Version None)
Quarter: 2008Q2

REPORT INFORMATION
  Report Type: 
  Country: None (occurrence: None)
  Receive Date: 20080623
  Receipt Date: 20080303
  Transmission Date: 20081010
  Serious: No
  Sender: FDA-Public Use
  Company Number: US-ASTRAZENECA-2008UW04380

PATIENT
  Sex: Female

DRUGS (4)
  1. RHINOCORT [Suspect]
     Indication: NASAL CONGESTION
     Route: 045
  2. PLAVIX [Concomitant]
  3. ZOCOR [Concomitant]
  4. ENALAPRIL MALEATE [Concomitant]

REACTIONS (3)
  - ACCIDENTAL EXPOSURE [None]
  - EYE BURNS [None]
  - EYE DISORDER [None]
